FAERS Safety Report 9371780 (Version 1)
Quarter: 2013Q2

REPORT INFORMATION
  Report Type: Spontaneous
  Country: CA (occurrence: CA)
  Receive Date: 20130627
  Receipt Date: 20130627
  Transmission Date: 20140414
  Serious: No
  Sender: FDA-Public Use
  Company Number: CA-ELI_LILLY_AND_COMPANY-CA201306004338

PATIENT
  Age: 67 Year
  Sex: Male

DRUGS (7)
  1. CIALIS [Suspect]
     Indication: ERECTILE DYSFUNCTION
     Dosage: 20 MG, UNKNOWN
  2. CIALIS [Suspect]
     Dosage: 1 DF, UNKNOWN
  3. VALSARTAN [Concomitant]
     Dosage: 160 MG, QD
  4. ATORVASTAN [Concomitant]
     Dosage: 10 MG, QD
  5. GLUCOSAMINE [Concomitant]
     Dosage: UNK, BID
  6. MULTI-VIT [Concomitant]
  7. DELATESTRYL [Concomitant]
     Dosage: UNK, MONTHLY (1/M)

REACTIONS (5)
  - Vision blurred [Recovered/Resolved]
  - Headache [Recovered/Resolved]
  - Back pain [Recovered/Resolved]
  - Myalgia [Unknown]
  - Drug ineffective [Unknown]
